FAERS Safety Report 17136629 (Version 2)
Quarter: 2020Q1

REPORT INFORMATION
  Report Type: Report from Study
  Country: JP (occurrence: JP)
  Receive Date: 20191210
  Receipt Date: 20200204
  Transmission Date: 20200409
  Serious: Yes (Hospitalization)
  Sender: FDA-Public Use
  Company Number: JP-ELI_LILLY_AND_COMPANY-JP201912004287

PATIENT
  Age: 71 Year
  Sex: Female

DRUGS (16)
  1. METHOTREXATE. [Suspect]
     Active Substance: METHOTREXATE
     Dosage: 4 MG, WEEKLY (1/W)
     Route: 048
     Dates: start: 20190130, end: 20190326
  2. FOLIAMIN [Concomitant]
     Active Substance: FOLIC ACID
     Indication: PROPHYLAXIS
     Dosage: 0.25 DOSAGE FORM, DAILY
     Route: 048
  3. OMEPRAZOLE. [Concomitant]
     Active Substance: OMEPRAZOLE
     Indication: PROPHYLAXIS
     Dosage: 10 MG
     Route: 048
  4. EDIROL [Concomitant]
     Active Substance: ELDECALCITOL
     Indication: OSTEOPOROSIS
     Dosage: 0.5 UG
     Route: 048
  5. METHOTREXATE. [Suspect]
     Active Substance: METHOTREXATE
     Indication: RHEUMATOID ARTHRITIS
     Dosage: 8 MG, WEEKLY (1/W)
     Route: 048
     Dates: end: 20190104
  6. METHOTREXATE. [Suspect]
     Active Substance: METHOTREXATE
     Dosage: 6 MG, WEEKLY (1/W)
     Route: 048
     Dates: start: 20190105, end: 20190129
  7. MECOBALAMIN [Concomitant]
     Active Substance: METHYLCOBALAMIN
     Indication: NEUROPATHY PERIPHERAL
     Dosage: 1.5 MG
     Route: 048
  8. FERRUM [IRON] [Concomitant]
     Indication: IRON DEFICIENCY ANAEMIA
     Dosage: 100 MG, QOD
     Route: 048
  9. CAMOSTAT MESILATE [Concomitant]
     Active Substance: CAMOSTAT MESYLATE
     Dosage: 600 MG
     Route: 048
     Dates: start: 20190725
  10. IRSOGLADINE MALEATE [Concomitant]
     Active Substance: IRSOGLADINE MALEATE
     Indication: PROPHYLAXIS
     Dosage: 4 MG
     Route: 048
  11. BARICITINIB [Suspect]
     Active Substance: BARICITINIB
     Dosage: 2 MG, EACH MORNING
     Route: 048
     Dates: start: 20200106
  12. METHOTREXATE. [Suspect]
     Active Substance: METHOTREXATE
     Dosage: 2 MG, WEEKLY (1/W)
     Route: 048
     Dates: start: 20190327
  13. NEUROVITAN [CYANOCOBALAMIN;INTRINSIC FACTOR;P [Concomitant]
     Indication: NEUROPATHY PERIPHERAL
     Dosage: 2 DOSAGE FORM
     Route: 048
  14. BARICITINIB [Suspect]
     Active Substance: BARICITINIB
     Indication: RHEUMATOID ARTHRITIS
     Dosage: 2 MG, EACH MORNING
     Route: 048
     Dates: start: 20181204, end: 20191009
  15. CARERAM [Suspect]
     Active Substance: IGURATIMOD
     Indication: RHEUMATOID ARTHRITIS
     Dosage: 50 MG, DAILY
     Route: 048
     Dates: start: 20141105
  16. URSODEOXYCHOLIC ACID [Concomitant]
     Active Substance: URSODIOL
     Indication: PRIMARY BILIARY CHOLANGITIS
     Dosage: 50 MG, TID
     Route: 048

REACTIONS (1)
  - Lip and/or oral cavity cancer stage 0 [Recovered/Resolved]

NARRATIVE: CASE EVENT DATE: 20191003
